FAERS Safety Report 11540415 (Version 1)
Quarter: 2015Q3

REPORT INFORMATION
  Report Type: Spontaneous
  Country: US (occurrence: US)
  Receive Date: 20150923
  Receipt Date: 20150923
  Transmission Date: 20151125
  Serious: No
  Sender: FDA-Public Use
  Company Number: US-BEH-2014045726

PATIENT
  Sex: Female
  Weight: 54 kg

DRUGS (20)
  1. FIORICET [Concomitant]
     Active Substance: ACETAMINOPHEN\BUTALBITAL\CAFFEINE
  2. MAXAIR [Concomitant]
     Active Substance: PIRBUTEROL ACETATE
  3. PRIVIGEN [Suspect]
     Active Substance: HUMAN IMMUNOGLOBULIN G
     Indication: IMMUNODEFICIENCY COMMON VARIABLE
     Route: 042
  4. DIPHENHYDRAMINE. [Concomitant]
     Active Substance: DIPHENHYDRAMINE
  5. EPINEPHRINE. [Concomitant]
     Active Substance: EPINEPHRINE
  6. HEPARIN [Concomitant]
     Active Substance: HEPARIN SODIUM
  7. DULERA [Concomitant]
     Active Substance: FORMOTEROL FUMARATE DIHYDRATE\MOMETASONE FUROATE
  8. PEPCID [Concomitant]
     Active Substance: FAMOTIDINE
  9. TOPAMAX [Concomitant]
     Active Substance: TOPIRAMATE
  10. SINGULAIR [Concomitant]
     Active Substance: MONTELUKAST SODIUM
  11. PRIVIGEN [Suspect]
     Active Substance: HUMAN IMMUNOGLOBULIN G
     Route: 042
  12. ZOLOFT [Concomitant]
     Active Substance: SERTRALINE HYDROCHLORIDE
  13. SALINE [Concomitant]
     Active Substance: SODIUM CHLORIDE
  14. NASONEX [Concomitant]
     Active Substance: MOMETASONE FUROATE
  15. LIDOCAINE/PRILOCAINE [Concomitant]
  16. PULMOZYME [Concomitant]
     Active Substance: DORNASE ALFA
  17. DEXTROSE. [Concomitant]
     Active Substance: DEXTROSE
  18. SODIUM CHLORIDE. [Concomitant]
     Active Substance: SODIUM CHLORIDE
  19. XOPENEX [Concomitant]
     Active Substance: LEVALBUTEROL HYDROCHLORIDE
  20. CYPROHEPTADINE. [Concomitant]
     Active Substance: CYPROHEPTADINE

REACTIONS (1)
  - Sinusitis [Unknown]
